FAERS Safety Report 17416819 (Version 2)
Quarter: 2021Q2

REPORT INFORMATION
  Report Type: Spontaneous
  Country: US (occurrence: US)
  Receive Date: 20200214
  Receipt Date: 20210630
  Transmission Date: 20210716
  Serious: No
  Sender: FDA-Public Use
  Company Number: US-SA-2020SA031755

PATIENT
  Age: 24 Year
  Sex: Male

DRUGS (8)
  1. MUPIROCIN. [Concomitant]
     Active Substance: MUPIROCIN
  2. DUPIXENT [Suspect]
     Active Substance: DUPILUMAB
     Indication: DERMATITIS ATOPIC
     Dosage: 300 MG, QOW
     Route: 058
  3. DUPIXENT [Suspect]
     Active Substance: DUPILUMAB
     Dosage: 300 MG, QOW
     Route: 058
  4. TRIAMCINOLONE ACETONIDE. [Concomitant]
     Active Substance: TRIAMCINOLONE ACETONIDE
  5. CLODERM [CLOTRIMAZOLE] [Concomitant]
     Active Substance: CLOTRIMAZOLE
  6. ELIDEL [Concomitant]
     Active Substance: PIMECROLIMUS
  7. CLOBETASOL PROPIONATE. [Concomitant]
     Active Substance: CLOBETASOL PROPIONATE
  8. VASELIN [Concomitant]

REACTIONS (5)
  - Dry skin [Unknown]
  - Product dose omission issue [Unknown]
  - Product dose omission issue [Unknown]
  - Pain [Unknown]
  - Dermatitis atopic [Unknown]

NARRATIVE: CASE EVENT DATE: 201911
